FAERS Safety Report 7211093-0 (Version None)
Quarter: 2011Q1

REPORT INFORMATION
  Report Type: 
  Country: None (occurrence: None)
  Receive Date: 20110105
  Receipt Date: 20101214
  Transmission Date: 20110831
  Serious: No
  Sender: FDA-Public Use
  Company Number: US-B.I. PHARMACEUTICALS,INC./RIDGEFIELD-2010-BP-14591BP

PATIENT
  Sex: Male

DRUGS (12)
  1. LEXAPRO [Concomitant]
     Indication: TENSION
  2. PRILOSEC [Concomitant]
     Indication: ABDOMINAL DISCOMFORT
  3. LORAZEPAM [Concomitant]
     Indication: NERVOUSNESS
  4. LASIX [Concomitant]
     Indication: FLUID RETENTION
  5. PRADAXA [Suspect]
     Indication: CARDIAC DISORDER
     Dosage: 300 MG
     Route: 048
     Dates: start: 20101101
  6. HYDROCODONE BITARTRATE + ACETAMINOPHEN [Concomitant]
     Indication: ARTHRITIS
  7. MULTIVITAMIN [Concomitant]
     Indication: PROPHYLAXIS
  8. POLYETHYLENE GLYCOL [Concomitant]
     Indication: CONSTIPATION
  9. NITROGLYCERIN [Concomitant]
     Indication: CHEST PAIN
  10. POTASSIUM [Concomitant]
     Indication: PROPHYLAXIS
  11. LIBREX [Concomitant]
     Indication: ABDOMINAL DISCOMFORT
  12. MORPHINE [Concomitant]
     Indication: ARTHRITIS

REACTIONS (2)
  - HEADACHE [None]
  - ABDOMINAL PAIN UPPER [None]
